FAERS Safety Report 4902515-6 (Version None)
Quarter: 2006Q1

REPORT INFORMATION
  Report Type: 
  Country: None (occurrence: None)
  Receive Date: 20060207
  Receipt Date: 20060120
  Transmission Date: 20060701
  Serious: Yes (Other)
  Sender: FDA-Public Use
  Company Number: PHEH2006US01236

PATIENT
  Age: 46 Year
  Sex: Female

DRUGS (2)
  1. VIVELLE-DOT [Suspect]
     Indication: HORMONE REPLACEMENT THERAPY
     Dosage: 0.1 MG/DAY, 2X WEEK
     Route: 062
     Dates: start: 19990101
  2. VITAMINS WITH MINERALS [Suspect]
     Dates: start: 20060101

REACTIONS (2)
  - AMNESIA [None]
  - HOT FLUSH [None]
